FAERS Safety Report 5025855-1 (Version None)
Quarter: 2006Q2

REPORT INFORMATION
  Report Type: 
  Country: None (occurrence: None)
  Receive Date: 20060614
  Receipt Date: 20060322
  Transmission Date: 20061013
  Serious: Yes (Hospitalization)
  Sender: FDA-Public Use
  Company Number: JP-AVENTIS-200610954JP

PATIENT
  Age: 66 Year
  Sex: Female

DRUGS (5)
  1. LANTUS [Suspect]
     Indication: DIABETES MELLITUS
     Route: 058
     Dates: start: 20060224, end: 20060226
  2. OPTICLIK (INSULIN INJECTION PEN) [Suspect]
  3. NOVORAPID [Concomitant]
     Route: 058
     Dates: start: 20060224, end: 20060226
  4. PENFILL R [Concomitant]
     Dates: start: 20060215, end: 20060223
  5. PENFILL N [Concomitant]
     Dates: start: 20060215, end: 20060223

REACTIONS (4)
  - BLOOD GLUCOSE INCREASED [None]
  - HEPATIC FUNCTION ABNORMAL [None]
  - LIVER DISORDER [None]
  - URINE KETONE BODY PRESENT [None]
